FAERS Safety Report 5729011-0 (Version None)
Quarter: 2008Q2

REPORT INFORMATION
  Report Type: 
  Country: None (occurrence: None)
  Receive Date: 20080430
  Receipt Date: 20080228
  Transmission Date: 20081010
  Serious: No
  Sender: FDA-Public Use
  Company Number: 2008PV034419

PATIENT
  Age: 64 Year
  Sex: Female

DRUGS (1)
  1. SYMLIN [Suspect]
     Indication: TYPE 2 DIABETES MELLITUS
     Dosage: 60 MCG;BID;SC
     Route: 058
     Dates: start: 20070430, end: 20080216

REACTIONS (1)
  - NASOPHARYNGITIS [None]
